FAERS Safety Report 8988773 (Version 1)
Quarter: 2012Q4

REPORT INFORMATION
  Report Type: Spontaneous
  Country: US (occurrence: None)
  Receive Date: 20121218
  Receipt Date: 20121218
  Transmission Date: 20130627
  Serious: Yes (Hospitalization)
  Sender: FDA-Public Use
  Company Number: 001434273A

PATIENT
  Age: 66 Year
  Sex: Female

DRUGS (5)
  1. PROACTIV RENEWING CLEANSER [Suspect]
     Indication: ACNE
     Route: 061
     Dates: start: 20121123, end: 20121125
  2. PROACTIV REPAIRING TREATMENT [Suspect]
     Indication: ACNE
     Route: 061
     Dates: start: 20121123, end: 20121125
  3. PROACTIV SPF 15 MOISTURIZER [Suspect]
     Indication: ACNE
     Route: 061
     Dates: start: 20121123, end: 20121125
  4. ANTIDEPRESSANT [Concomitant]
  5. SINGULAIR [Concomitant]

REACTIONS (4)
  - Swelling face [None]
  - Eye swelling [None]
  - Dermatitis allergic [None]
  - Facial pain [None]
